FAERS Safety Report 5825725-2 (Version None)
Quarter: 2008Q3

REPORT INFORMATION
  Report Type: 
  Country: None (occurrence: None)
  Receive Date: 20080723
  Receipt Date: 20080715
  Transmission Date: 20090109
  Serious: Yes (Hospitalization)
  Sender: FDA-Public Use
  Company Number: 2008SP013839

PATIENT
  Age: 37 Year
  Sex: Male

DRUGS (2)
  1. NASONEX [Suspect]
     Indication: RHINITIS ALLERGIC
     Dosage: 2 DF; QD; INH
     Route: 055
     Dates: start: 20080401, end: 20080501
  2. FLIXONASE (FLUTICASONE) (50 MCG) [Suspect]
     Indication: RHINITIS ALLERGIC
     Dates: start: 20080201

REACTIONS (7)
  - ABSCESS [None]
  - DIZZINESS [None]
  - DRUG INEFFECTIVE [None]
  - FALL [None]
  - MALAISE [None]
  - NEUROLOGICAL SYMPTOM [None]
  - SINUS DISORDER [None]
